FAERS Safety Report 15983184 (Version 1)
Quarter: 2019Q1

REPORT INFORMATION
  Report Type: Spontaneous
  Country: FR (occurrence: FR)
  Receive Date: 20190220
  Receipt Date: 20190220
  Transmission Date: 20190418
  Serious: Yes (Other)
  Sender: FDA-Public Use
  Company Number: FR-LUPIN PHARMACEUTICALS INC.-2019-00956

PATIENT
  Age: 39 Year
  Sex: Female

DRUGS (1)
  1. MISOPROSTOL TABLET [Suspect]
     Active Substance: MISOPROSTOL
     Indication: ABORTION INDUCED
     Dosage: 3 DOSAGE FORM, SINGLE
     Route: 065

REACTIONS (3)
  - Exposure during pregnancy [Unknown]
  - Induced abortion failed [Unknown]
  - Off label use [Unknown]
